FAERS Safety Report 22004590 (Version 1)
Quarter: 2023Q1

REPORT INFORMATION
  Report Type: Spontaneous
  Country: US (occurrence: US)
  Receive Date: 20230217
  Receipt Date: 20230217
  Transmission Date: 20230417
  Serious: Yes (Other)
  Sender: FDA-Public Use
  Company Number: US-Hikma Pharmaceuticals USA Inc.-US-H14001-23-00431

PATIENT
  Age: 70 Year
  Sex: Male
  Weight: 115.67 kg

DRUGS (4)
  1. METHOTREXATE [Suspect]
     Active Substance: METHOTREXATE
     Indication: Psoriatic arthropathy
     Route: 065
     Dates: start: 20201015, end: 20220915
  2. XELJANZ XR [Suspect]
     Active Substance: TOFACITINIB CITRATE
     Indication: Psoriatic arthropathy
     Dosage: UNKNOWN
     Route: 065
     Dates: start: 20200211, end: 20220921
  3. XELJANZ XR [Suspect]
     Active Substance: TOFACITINIB CITRATE
     Indication: Psoriasis
  4. UNSPECIFIED INGREDIENT [Concomitant]
     Active Substance: UNSPECIFIED INGREDIENT
     Indication: Hypercholesterolaemia
     Dosage: UNKNOWN
     Route: 065

REACTIONS (2)
  - Blood creatine phosphokinase increased [Recovering/Resolving]
  - Coccidioidomycosis [Unknown]

NARRATIVE: CASE EVENT DATE: 20220801
